FAERS Safety Report 10387777 (Version 1)
Quarter: 2014Q3

REPORT INFORMATION
  Report Type: Spontaneous
  Country: TW (occurrence: None)
  Receive Date: 20140813
  Receipt Date: 20140813
  Transmission Date: 20150326
  Serious: Yes (Hospitalization)
  Sender: FDA-Public Use
  Company Number: IPC201407-000405

PATIENT
  Age: 50 Year
  Sex: Male
  Weight: 85 kg

DRUGS (7)
  1. PROPRANOLOL HYDROCHLORIDE. [Suspect]
     Active Substance: PROPRANOLOL HYDROCHLORIDE
     Indication: AKATHISIA
  2. HALOPERIDOL. [Suspect]
     Active Substance: HALOPERIDOL
  3. CLONAZEPAM. [Suspect]
     Active Substance: CLONAZEPAM
  4. VALPROATE [Suspect]
     Active Substance: VALPROATE SODIUM
  5. AMISULPRIDE [Suspect]
     Active Substance: AMISULPRIDE
  6. CLONIDINE. [Suspect]
     Active Substance: CLONIDINE
     Indication: SALIVARY HYPERSECRETION
  7. CLOZAPINE. [Suspect]
     Active Substance: CLOZAPINE
     Indication: PSYCHOTIC DISORDER

REACTIONS (8)
  - Sedation [None]
  - Blood glucose increased [None]
  - Weight increased [None]
  - Drooling [None]
  - Blood cholesterol increased [None]
  - Off label use [None]
  - Increased appetite [None]
  - Blood triglycerides increased [None]
